FAERS Safety Report 5479404-4 (Version None)
Quarter: 2007Q4

REPORT INFORMATION
  Report Type: 
  Country: None (occurrence: None)
  Receive Date: 20071008
  Receipt Date: 20071001
  Transmission Date: 20080405
  Serious: Yes (Other)
  Sender: FDA-Public Use
  Company Number: TR-AMGEN-US246170

PATIENT
  Sex: Female

DRUGS (2)
  1. ENBREL [Suspect]
     Indication: ANKYLOSING SPONDYLITIS
     Route: 058
     Dates: start: 20050101, end: 20070911
  2. METHOTREXATE [Concomitant]
     Dosage: UNKNOWN

REACTIONS (2)
  - CERVICAL DYSPLASIA [None]
  - CERVICAL POLYP [None]
